FAERS Safety Report 8748211 (Version 2)
Quarter: 2012Q4

REPORT INFORMATION
  Report Type: Report from Study
  Country: CA (occurrence: CA)
  Receive Date: 20120827
  Receipt Date: 20121112
  Transmission Date: 20130627
  Serious: Yes (Hospitalization)
  Sender: FDA-Public Use
  Company Number: CA-ROCHE-1088048

PATIENT
  Sex: Male

DRUGS (13)
  1. VEMURAFENIB [Suspect]
     Indication: METASTATIC MALIGNANT MELANOMA
     Route: 042
     Dates: start: 20120702
  2. VEMURAFENIB [Suspect]
     Route: 042
     Dates: start: 20120716
  3. VEMURAFENIB [Suspect]
     Route: 042
     Dates: start: 20120905, end: 20121105
  4. METFORMIN [Concomitant]
  5. GLICLAZIDE [Concomitant]
  6. PIOGLITAZONE [Concomitant]
  7. LOVASTATIN [Concomitant]
  8. METOPROLOL [Concomitant]
  9. PROPAFENONE [Concomitant]
  10. WARFARIN [Concomitant]
  11. METHOTREXATE [Concomitant]
  12. VITAMIN D [Concomitant]
  13. MULTIVITAMINS [Concomitant]

REACTIONS (8)
  - Asthenia [Not Recovered/Not Resolved]
  - Dysgeusia [Not Recovered/Not Resolved]
  - Hypophagia [Not Recovered/Not Resolved]
  - Fluid intake reduced [Not Recovered/Not Resolved]
  - Blood disorder [Unknown]
  - Dyspepsia [Recovered/Resolved]
  - Decreased appetite [Not Recovered/Not Resolved]
  - Weight decreased [Not Recovered/Not Resolved]
